FAERS Safety Report 20981269 (Version 1)
Quarter: 2022Q2

REPORT INFORMATION
  Report Type: Spontaneous
  Country: FR (occurrence: FR)
  Receive Date: 20220620
  Receipt Date: 20220620
  Transmission Date: 20220720
  Serious: Yes (Life-Threatening, Other)
  Sender: FDA-Public Use
  Company Number: None

PATIENT
  Age: 1 Year
  Sex: Male
  Weight: 9 kg

DRUGS (9)
  1. ADVATE [Suspect]
     Active Substance: ANTIHEMOPHILIC FACTOR, HUMAN RECOMBINANT
     Indication: Factor VIII deficiency
     Dosage: 500 DOSAGE FORM, 1/WEEK
     Route: 042
     Dates: start: 20220325
  2. ADVATE [Suspect]
     Active Substance: ANTIHEMOPHILIC FACTOR, HUMAN RECOMBINANT
     Indication: Factor VIII deficiency
     Dosage: 500 DOSAGE FORM, 1/WEEK
     Route: 042
     Dates: start: 20220325
  3. ADVATE [Suspect]
     Active Substance: ANTIHEMOPHILIC FACTOR, HUMAN RECOMBINANT
     Indication: Factor VIII deficiency
     Dosage: 500 DOSAGE FORM, 1/WEEK
     Route: 042
     Dates: start: 20220325
  4. ADVATE [Suspect]
     Active Substance: ANTIHEMOPHILIC FACTOR, HUMAN RECOMBINANT
     Dosage: 500 DOSAGE FORM, 1/WEEK
     Route: 042
     Dates: start: 20220325
  5. ADVATE [Suspect]
     Active Substance: ANTIHEMOPHILIC FACTOR, HUMAN RECOMBINANT
     Dosage: 500 DOSAGE FORM, 1/WEEK
     Route: 042
     Dates: start: 20220325
  6. ADVATE [Suspect]
     Active Substance: ANTIHEMOPHILIC FACTOR, HUMAN RECOMBINANT
     Dosage: 500 DOSAGE FORM, 1/WEEK
     Route: 042
     Dates: start: 20220325
  7. ADVATE [Suspect]
     Active Substance: ANTIHEMOPHILIC FACTOR, HUMAN RECOMBINANT
     Dosage: 500 DOSAGE FORM, 1/WEEK
     Route: 042
     Dates: start: 20220325
  8. ADVATE [Suspect]
     Active Substance: ANTIHEMOPHILIC FACTOR, HUMAN RECOMBINANT
     Dosage: 500 DOSAGE FORM, 1/WEEK
     Route: 042
     Dates: start: 20220325
  9. ADVATE [Suspect]
     Active Substance: ANTIHEMOPHILIC FACTOR, HUMAN RECOMBINANT
     Dosage: 500 DOSAGE FORM, 1/WEEK
     Route: 042
     Dates: start: 20220325

REACTIONS (1)
  - Anti factor VIII antibody test [Unknown]

NARRATIVE: CASE EVENT DATE: 20220525
